FAERS Safety Report 12722322 (Version 1)
Quarter: 2016Q3

REPORT INFORMATION
  Report Type: Spontaneous
  Country: ES (occurrence: ES)
  Receive Date: 20160907
  Receipt Date: 20160907
  Transmission Date: 20161109
  Serious: Yes (Other)
  Sender: FDA-Public Use
  Company Number: ES-BRISTOL-MYERS SQUIBB COMPANY-BMS-2016-072131

PATIENT
  Age: 86 Year
  Sex: Male

DRUGS (2)
  1. COROPRES                           /00984501/ [Concomitant]
     Indication: CARDIAC FAILURE
     Route: 065
  2. ELIQUIS [Suspect]
     Active Substance: APIXABAN
     Indication: CEREBROVASCULAR ACCIDENT PROPHYLAXIS
     Dosage: 2 TAB, UNK
     Route: 048
     Dates: start: 201603

REACTIONS (1)
  - Macular degeneration [Unknown]
